FAERS Safety Report 7125117-2 (Version None)
Quarter: 2010Q4

REPORT INFORMATION
  Report Type: 
  Country: None (occurrence: None)
  Receive Date: 20101129
  Receipt Date: 20101014
  Transmission Date: 20110411
  Serious: Yes (Other)
  Sender: FDA-Public Use
  Company Number: US-AMGEN-US366705

PATIENT

DRUGS (14)
  1. NPLATE [Suspect]
     Indication: IDIOPATHIC THROMBOCYTOPENIC PURPURA
     Dosage: UNK UNK, QWK
     Route: 058
     Dates: start: 20070101
  2. NPLATE [Suspect]
     Dates: start: 20100902
  3. NPLATE [Suspect]
     Dates: start: 20091015
  4. NPLATE [Suspect]
     Dosage: 1 A?G/KG, UNK
     Dates: start: 20091001
  5. COUMADIN [Concomitant]
  6. INSULIN [Concomitant]
  7. CALCIUM [Concomitant]
  8. DILTIAZEM [Concomitant]
  9. FOLIC ACID [Concomitant]
  10. FOSAMAX [Concomitant]
  11. LISINOPRIL [Concomitant]
  12. SIMVASTATIN [Concomitant]
  13. VITAMIN B6 [Concomitant]
  14. ZOLOFT [Concomitant]

REACTIONS (6)
  - HAEMORRHAGE [None]
  - PLATELET COUNT DECREASED [None]
  - SKIN HAEMORRHAGE [None]
  - SUTURE RELATED COMPLICATION [None]
  - THERAPEUTIC RESPONSE DECREASED [None]
  - TRAUMATIC HAEMATOMA [None]
